FAERS Safety Report 5891751-0 (Version None)
Quarter: 2008Q3

REPORT INFORMATION
  Report Type: 
  Country: None (occurrence: None)
  Receive Date: 20080908
  Receipt Date: 20080722
  Transmission Date: 20090109
  Serious: No
  Sender: FDA-Public Use
  Company Number: 002#2#2007-00152

PATIENT
  Age: 86 Year
  Sex: Female
  Weight: 44.9061 kg

DRUGS (22)
  1. NEUPRO [Suspect]
     Indication: PARKINSON'S DISEASE
     Dosage: 6MG/24H, 1 IN 1 D, TRANSDERMAL : 4MG/24H, 1 IN 1 D, TRANSDERMAL : 2MG/24H, 1 IN 1 D, TRANSDERMAL
     Route: 062
     Dates: start: 20070101, end: 20070101
  2. NEUPRO [Suspect]
     Indication: PARKINSON'S DISEASE
     Dosage: 6MG/24H, 1 IN 1 D, TRANSDERMAL : 4MG/24H, 1 IN 1 D, TRANSDERMAL : 2MG/24H, 1 IN 1 D, TRANSDERMAL
     Route: 062
     Dates: start: 20070722, end: 20070101
  3. NEUPRO [Suspect]
     Indication: PARKINSON'S DISEASE
     Dosage: 6MG/24H, 1 IN 1 D, TRANSDERMAL : 4MG/24H, 1 IN 1 D, TRANSDERMAL : 2MG/24H, 1 IN 1 D, TRANSDERMAL
     Route: 062
     Dates: start: 20070101, end: 20070830
  4. ZELAPAR [Concomitant]
  5. STALEVO 100 [Concomitant]
  6. NAMENDA [Concomitant]
  7. SYNTHROID [Concomitant]
  8. EVISTA [Concomitant]
  9. GALANTAMINE HYDROBROMIDE [Concomitant]
  10. FORTEO [Concomitant]
  11. GINGER CANDY [Concomitant]
  12. MECLIZINE [Concomitant]
  13. ZOFRAN [Concomitant]
  14. CALAMINE LOTION [Concomitant]
  15. CETAFIL CREAM [Concomitant]
  16. LUBRIDERM [Concomitant]
  17. HYDROCORTISONE CREAM MAXIMUM STRENGHT [Concomitant]
  18. DESITIN LOTION [Concomitant]
  19. MIRALAX [Concomitant]
  20. MELATONIN [Concomitant]
  21. EXELON [Concomitant]
  22. MIRAPEX [Concomitant]

REACTIONS (5)
  - APPLICATION SITE DISCOLOURATION [None]
  - APPLICATION SITE PRURITUS [None]
  - APPLICATION SITE RASH [None]
  - APPLICATION SITE REACTION [None]
  - APPLICATION SITE VESICLES [None]
